FAERS Safety Report 18965945 (Version 1)
Quarter: 2021Q1

REPORT INFORMATION
  Report Type: Spontaneous
  Country: US (occurrence: US)
  Receive Date: 20210304
  Receipt Date: 20210304
  Transmission Date: 20210420
  Serious: No
  Sender: FDA-Public Use
  Company Number: US-ESPERIONTHERAPEUTICS-2021USA00031

PATIENT
  Age: 81 Year
  Sex: Female

DRUGS (3)
  1. NEXLETOL [Concomitant]
     Active Substance: BEMPEDOIC ACID
     Dosage: UNK
     Route: 065
     Dates: start: 2020
  2. NEXLIZET [Suspect]
     Active Substance: BEMPEDOIC ACID\EZETIMIBE
     Indication: BLOOD CHOLESTEROL INCREASED
     Dosage: 180/10 MILLIGRAM, QOD
     Route: 048
  3. REPATHA [Concomitant]
     Active Substance: EVOLOCUMAB
     Dosage: UNK
     Route: 065

REACTIONS (1)
  - Inappropriate schedule of product administration [Not Recovered/Not Resolved]
